FAERS Safety Report 4946193-9 (Version None)
Quarter: 2006Q1

REPORT INFORMATION
  Report Type: 
  Country: None (occurrence: None)
  Receive Date: 20060118
  Receipt Date: 20050104
  Transmission Date: 20060701
  Serious: Yes (Other)
  Sender: FDA-Public Use
  Company Number: US-JNJFOC-2005100548

PATIENT
  Age: 55 Year
  Sex: Female
  Weight: 83.9154 kg

DRUGS (1)
  1. DOXIL (DOXORUBICIN HYDROCHLORIDE) LIPOSME INJECTION [Suspect]
     Indication: BREAST CANCER METASTATIC
     Dosage: 40 MG/M2, INTRAVENOUS
     Route: 042

REACTIONS (1)
  - INFUSION RELATED REACTION [None]
